FAERS Safety Report 10005046 (Version 1)
Quarter: 2014Q1

REPORT INFORMATION
  Report Type: Spontaneous
  Country: DE (occurrence: DE)
  Receive Date: 20140312
  Receipt Date: 20140312
  Transmission Date: 20141002
  Serious: Yes (Congenital Anomaly)
  Sender: FDA-Public Use
  Company Number: GXKR2014DE001189

PATIENT
  Sex: 0

DRUGS (11)
  1. TRAZODONE [Suspect]
     Indication: SLEEP DISORDER
     Dosage: 50 [MG/D ]
     Route: 064
     Dates: start: 20121013, end: 20130614
  2. FLUOXETIN [Concomitant]
     Indication: DEPRESSION
     Dosage: 20 [MG/2D ]
     Route: 064
  3. TAVOR (LORAZEPAM) [Concomitant]
     Indication: PANIC ATTACK
     Dosage: 1 [MG/D ]/ OCCASIONALLY. WHEN PANIC ATTACKS.
     Route: 064
     Dates: start: 20121013, end: 20130614
  4. FOLIO FORTE [Concomitant]
     Indication: PROPHYLAXIS OF NEURAL TUBE DEFECT
     Dosage: 0.8 [MG/D ]
     Route: 064
     Dates: start: 20121115
  5. HALCION [Concomitant]
     Indication: PANIC ATTACK
     Route: 064
  6. SERTRALINE [Concomitant]
     Indication: DEPRESSION
     Dosage: 50 [MG/D ] (GW 5-34.6)
     Route: 064
  7. AMOXICILLIN [Concomitant]
     Indication: PNEUMONIA
     Dosage: 3000 [MG/D (3X1000 MG/D) ] (GW12-13)
     Route: 064
  8. CODEINE [Concomitant]
     Indication: COUGH
     Dosage: GW 12-13
     Route: 064
  9. PARACETAMOL CODEINE [Concomitant]
     Indication: INTERVERTEBRAL DISC PROTRUSION
     Dosage: OCASSIONALLY (GW 13-34.5)
     Route: 064
  10. VOLTAREN ^CIBA-GEIGY^ [Concomitant]
     Indication: INTERVERTEBRAL DISC PROTRUSION
     Dosage: TWICE DURING THAT WEEK. (GW 23-24)
     Route: 064
  11. ASS [Concomitant]
     Indication: PLACENTAL INSUFFICIENCY
     Dosage: 100 [MG/D ] (GW 12-34.5)
     Route: 064

REACTIONS (1)
  - Penile torsion [Not Recovered/Not Resolved]
